FAERS Safety Report 7487733-8 (Version None)
Quarter: 2011Q2

REPORT INFORMATION
  Report Type: 
  Country: None (occurrence: None)
  Receive Date: 20110518
  Receipt Date: 20110510
  Transmission Date: 20111010
  Serious: Yes (Other)
  Sender: FDA-Public Use
  Company Number: PHFR2011GB03003

PATIENT
  Sex: Female

DRUGS (2)
  1. GLEEVEC [Suspect]
     Indication: CHRONIC MYELOID LEUKAEMIA
     Dosage: 400 MG, UNK
  2. GLEEVEC [Suspect]
     Dosage: 100 MG, UNK

REACTIONS (5)
  - ORAL DISCOMFORT [None]
  - GAIT DISTURBANCE [None]
  - SKIN REACTION [None]
  - DIZZINESS [None]
  - BLINDNESS UNILATERAL [None]
